FAERS Safety Report 16586357 (Version 1)
Quarter: 2019Q3

REPORT INFORMATION
  Report Type: Spontaneous
  Country: US (occurrence: US)
  Receive Date: 20190717
  Receipt Date: 20190717
  Transmission Date: 20191004
  Serious: No
  Sender: FDA-Public Use
  Company Number: US-KVK-TECH, INC-2070936

PATIENT

DRUGS (1)
  1. PHENDIMETRAZINE TARTRATE. [Suspect]
     Active Substance: PHENDIMETRAZINE TARTRATE
     Indication: PRODUCT USED FOR UNKNOWN INDICATION
     Route: 065

REACTIONS (4)
  - Food craving [Unknown]
  - Drug ineffective [Unknown]
  - Headache [Unknown]
  - Dry mouth [Unknown]
